FAERS Safety Report 19634499 (Version 1)
Quarter: 2021Q3

REPORT INFORMATION
  Report Type: Spontaneous
  Country: US (occurrence: US)
  Receive Date: 20210729
  Receipt Date: 20210729
  Transmission Date: 20211014
  Serious: No
  Sender: FDA-Public Use
  Company Number: US-PARATEK PHARMACEUTICALS, INC.-2021PTK00067

PATIENT
  Age: 49 Year
  Sex: Female
  Weight: 58.96 kg

DRUGS (2)
  1. NADOLOL. [Concomitant]
     Active Substance: NADOLOL
  2. NUZYRA [Suspect]
     Active Substance: OMADACYCLINE
     Indication: PNEUMONIA BACTERIAL
     Dosage: 300 MG, 1X/DAY
     Route: 048
     Dates: start: 20210501

REACTIONS (9)
  - Insomnia [Recovered/Resolved]
  - Incorrect product administration duration [Not Recovered/Not Resolved]
  - Chest discomfort [Recovered/Resolved]
  - Tremor [Recovered/Resolved]
  - Nausea [Recovered/Resolved]
  - Anxiety [Unknown]
  - Abdominal pain upper [Recovered/Resolved]
  - Incorrect dose administered [Not Recovered/Not Resolved]
  - Stress [Unknown]

NARRATIVE: CASE EVENT DATE: 202105
